FAERS Safety Report 6137109-0 (Version None)
Quarter: 2009Q1

REPORT INFORMATION
  Report Type: 
  Country: None (occurrence: None)
  Receive Date: 20090326
  Receipt Date: 20090326
  Transmission Date: 20090719
  Serious: Yes (Disabling, Other)
  Sender: FDA-Public Use
  Company Number: None

PATIENT
  Age: 37 Year
  Sex: Female
  Weight: 70.3075 kg

DRUGS (1)
  1. LEVAQUIN [Suspect]
     Indication: PNEUMONIA
     Dosage: 1 TABLET BY MOUTH ONCE A DAY PO
     Route: 048
     Dates: start: 20090226, end: 20090228

REACTIONS (3)
  - ABASIA [None]
  - PAIN IN EXTREMITY [None]
  - TENDONITIS [None]
